FAERS Safety Report 4425169-4 (Version None)
Quarter: 2004Q3

REPORT INFORMATION
  Report Type: 
  Country: None (occurrence: None)
  Receive Date: 20040811
  Receipt Date: 20040811
  Transmission Date: 20050211
  Serious: No
  Sender: FDA-Public Use
  Company Number: None

PATIENT
  Sex: Male
  Weight: 50 kg

DRUGS (4)
  1. CAMPTOSAR [Suspect]
     Indication: UNDIFFERENTIATED SARCOMA
     Dosage: 70MG M-TU-WE-TH INTRAVENOUS
     Route: 042
     Dates: start: 20040802, end: 20040806
  2. DIPHENHYDRAMINE HCL [Concomitant]
  3. RANITIDINE [Concomitant]
  4. HYDROCORTISONE [Concomitant]

REACTIONS (2)
  - SWELLING [None]
  - URTICARIA [None]
